FAERS Safety Report 7842163-1 (Version None)
Quarter: 2011Q4

REPORT INFORMATION
  Report Type: 
  Country: None (occurrence: None)
  Receive Date: 20111024
  Receipt Date: 20111024
  Transmission Date: 20120403
  Serious: Yes (Other)
  Sender: FDA-Public Use
  Company Number: None

PATIENT
  Sex: Female
  Weight: 64.4108 kg

DRUGS (1)
  1. DABIGATRAN [Suspect]
     Indication: COAGULOPATHY
     Dosage: 150 MG 2 A DAY
     Dates: start: 20110701, end: 20111004

REACTIONS (1)
  - DYSPEPSIA [None]
